FAERS Safety Report 6494728-X (Version None)
Quarter: 2009Q4

REPORT INFORMATION
  Report Type: 
  Country: None (occurrence: None)
  Receive Date: 20091214
  Receipt Date: 20090316
  Transmission Date: 20100525
  Serious: No
  Sender: FDA-Public Use
  Company Number: US-BRISTOL-MYERS SQUIBB COMPANY-14551790

PATIENT

DRUGS (2)
  1. ABILIFY [Suspect]
     Indication: BIPOLAR DISORDER
     Dosage: INITIATED AT 10MG,INCREASED TO 15MG,REDUCED TO 10MG.
  2. LITHIUM [Concomitant]

REACTIONS (1)
  - DROOLING [None]
